FAERS Safety Report 16122296 (Version 1)
Quarter: 2019Q1

REPORT INFORMATION
  Report Type: Spontaneous
  Country: US (occurrence: US)
  Receive Date: 20190327
  Receipt Date: 20190327
  Transmission Date: 20190418
  Serious: No
  Sender: FDA-Public Use
  Company Number: US-BAYER-2019-057811

PATIENT
  Age: 35 Year
  Sex: Female

DRUGS (1)
  1. MIRALAX [Suspect]
     Active Substance: POLYETHYLENE GLYCOL 3350
     Indication: GASTROINTESTINAL DISORDER
     Dosage: ;AS LABELLED DOSE
     Route: 048
     Dates: start: 201903, end: 201903

REACTIONS (3)
  - Product odour abnormal [Unknown]
  - Dysgeusia [Unknown]
  - Poor quality product administered [None]

NARRATIVE: CASE EVENT DATE: 201903
